FAERS Safety Report 8963546 (Version 4)
Quarter: 2013Q2

REPORT INFORMATION
  Report Type: Report from Study
  Country: MY (occurrence: MY)
  Receive Date: 20121213
  Receipt Date: 20130603
  Transmission Date: 20140414
  Serious: Yes (Hospitalization, Other)
  Sender: FDA-Public Use
  Company Number: MY-ELI_LILLY_AND_COMPANY-MY201212001355

PATIENT
  Age: 56 Year
  Sex: Male
  Weight: 53 kg

DRUGS (5)
  1. PEMETREXED [Suspect]
     Indication: NON-SMALL CELL LUNG CANCER
     Dosage: 810 MG, 1 IN 3 WEEKS
     Route: 042
     Dates: start: 20121005
  2. OTHER PHARMA COMPANY INV DRUG [Suspect]
     Indication: NON-SMALL CELL LUNG CANCER
     Dosage: UNK, 1 IN 3 WEKS
     Route: 042
     Dates: start: 20121005
  3. CARBOPLATIN [Suspect]
     Indication: NON-SMALL CELL LUNG CANCER
     Dosage: 701 MG, 1 IN 3 WEEKS
     Route: 042
     Dates: start: 20121005
  4. CARBOPLATIN [Suspect]
     Dosage: 610 MG, UNK
  5. CARBOPLATIN [Suspect]
     Dosage: 568.5 MG, UNK
     Dates: start: 20121121

REACTIONS (7)
  - Abdominal pain [Recovered/Resolved]
  - Dyspnoea [Recovered/Resolved with Sequelae]
  - Constipation [Recovered/Resolved with Sequelae]
  - Nausea [Recovering/Resolving]
  - Dizziness [Recovered/Resolved]
  - Gastritis [Recovered/Resolved]
  - Respiratory tract infection [Unknown]
